FAERS Safety Report 21478179 (Version 2)
Quarter: 2022Q4

REPORT INFORMATION
  Report Type: Spontaneous
  Country: CA (occurrence: CA)
  Receive Date: 20221019
  Receipt Date: 20221118
  Transmission Date: 20230113
  Serious: Yes (Other)
  Sender: FDA-Public Use
  Company Number: CA-GLAXOSMITHKLINE-CA2022105325

PATIENT

DRUGS (4)
  1. ZEJULA [Suspect]
     Active Substance: NIRAPARIB
     Indication: Ovarian epithelial cancer recurrent
     Dosage: 200 MG, QD
     Route: 048
     Dates: start: 20220627
  2. ZEJULA [Suspect]
     Active Substance: NIRAPARIB
     Indication: Fallopian tube cancer
     Dosage: 200 MG, QD
     Route: 048
     Dates: start: 20220815, end: 20220905
  3. ZEJULA [Suspect]
     Active Substance: NIRAPARIB
     Indication: Malignant peritoneal neoplasm
     Dosage: 100 MG, QD
     Route: 048
     Dates: start: 20221003, end: 20221018
  4. MAGNESIUM [Concomitant]
     Active Substance: MAGNESIUM
     Indication: Product used for unknown indication
     Dosage: UNK

REACTIONS (10)
  - Malignant neoplasm progression [Unknown]
  - Nausea [Recovering/Resolving]
  - Fatigue [Recovering/Resolving]
  - Haemoglobin decreased [Unknown]
  - Red blood cell count decreased [Unknown]
  - Haematocrit decreased [Unknown]
  - White blood cell count decreased [Unknown]
  - Lymphocyte count decreased [Unknown]
  - Platelet count decreased [Recovering/Resolving]
  - Drug ineffective [Unknown]

NARRATIVE: CASE EVENT DATE: 20220712
